FAERS Safety Report 20703392 (Version 1)
Quarter: 2022Q2

REPORT INFORMATION
  Report Type: Spontaneous
  Country: US (occurrence: US)
  Receive Date: 20220413
  Receipt Date: 20220413
  Transmission Date: 20220720
  Serious: Yes (Hospitalization)
  Sender: FDA-Public Use
  Company Number: US-CADILA HEALTHCARE LIMITED-US-ZYDUS-076815

PATIENT

DRUGS (1)
  1. ELETRIPTAN [Suspect]
     Active Substance: ELETRIPTAN
     Indication: Migraine
     Dosage: UNK
     Route: 065

REACTIONS (1)
  - Coronary artery dissection [Recovered/Resolved]
